FAERS Safety Report 6361152-X (Version None)
Quarter: 2009Q3

REPORT INFORMATION
  Report Type: 
  Country: None (occurrence: None)
  Receive Date: 20090918
  Receipt Date: 20090911
  Transmission Date: 20100115
  Serious: Yes (Hospitalization)
  Sender: FDA-Public Use
  Company Number: US-ABBOTT-09P-163-0596470-00

PATIENT
  Sex: Female
  Weight: 47.67 kg

DRUGS (3)
  1. SYNTHROID [Suspect]
     Indication: HYPOTHYROIDISM
     Dosage: VARIOUS DOSES
     Dates: start: 19970101, end: 20090201
  2. SYNTHROID [Suspect]
     Dosage: VARIOUS DOSES
     Route: 048
     Dates: start: 20090601
  3. ADVAIR HFA [Concomitant]
     Indication: CHRONIC OBSTRUCTIVE PULMONARY DISEASE

REACTIONS (10)
  - BLOOD CALCIUM DECREASED [None]
  - BLOOD MAGNESIUM DECREASED [None]
  - BLOOD POTASSIUM DECREASED [None]
  - DIARRHOEA [None]
  - DRUG DOSE OMISSION [None]
  - HEART RATE DECREASED [None]
  - HYPOAESTHESIA [None]
  - INCORRECT DRUG ADMINISTRATION DURATION [None]
  - JOINT RANGE OF MOTION DECREASED [None]
  - SINUS DISORDER [None]
